FAERS Safety Report 16957573 (Version 1)
Quarter: 2019Q4

REPORT INFORMATION
  Report Type: Spontaneous
  Country: US (occurrence: US)
  Receive Date: 20190905
  Receipt Date: 20190905
  Transmission Date: 20200122
  Serious: Yes (Life-Threatening, Hospitalization)
  Sender: FDA-Public Use
  Company Number: None

PATIENT
  Age: 74 Year
  Sex: Female
  Weight: 96.62 kg

DRUGS (11)
  1. JARDIANCE [Suspect]
     Active Substance: EMPAGLIFLOZIN
     Indication: DIABETES MELLITUS
     Route: 048
     Dates: end: 20171115
  2. METFORMIN [Concomitant]
     Active Substance: METFORMIN HYDROCHLORIDE
  3. VITAMIN C [Concomitant]
     Active Substance: ASCORBIC ACID
  4. LISINOPRIL. [Concomitant]
     Active Substance: LISINOPRIL
  5. VITAMIN D [Concomitant]
     Active Substance: VITAMIN D NOS
  6. TRICOR [Concomitant]
     Active Substance: FENOFIBRATE
  7. LOVAZA [Concomitant]
     Active Substance: OMEGA-3-ACID ETHYL ESTERS
  8. CRESTOR [Concomitant]
     Active Substance: ROSUVASTATIN CALCIUM
  9. MULTI VITAMIN [Concomitant]
     Active Substance: VITAMINS
  10. VITAMIN B [Concomitant]
     Active Substance: VITAMIN B
  11. LOW DOSE ASPIRIN [Concomitant]
     Active Substance: ASPIRIN

REACTIONS (6)
  - Haematuria [None]
  - Hydronephrosis [None]
  - Sepsis [None]
  - Haemorrhage urinary tract [None]
  - Dyspnoea [None]
  - Fungal infection [None]

NARRATIVE: CASE EVENT DATE: 20171115
